FAERS Safety Report 7325673-5 (Version None)
Quarter: 2011Q1

REPORT INFORMATION
  Report Type: 
  Country: None (occurrence: None)
  Receive Date: 20110302
  Receipt Date: 20110223
  Transmission Date: 20110831
  Serious: Yes (Other)
  Sender: FDA-Public Use
  Company Number: BR-PFIZER INC-2011036014

PATIENT
  Age: 70 Year
  Sex: Female

DRUGS (2)
  1. AMBROXOL HYDROCHLORIDE [Suspect]
     Dosage: UNK
     Dates: start: 20101201, end: 20110216
  2. LYRICA [Suspect]
     Indication: BACK PAIN
     Dosage: 75 MG, 1X/DAY
     Route: 048
     Dates: start: 20101101, end: 20110216

REACTIONS (1)
  - HYPERTENSION [None]
